FAERS Safety Report 9200693 (Version 1)
Quarter: 2013Q1

REPORT INFORMATION
  Report Type: Spontaneous
  Country: IT (occurrence: IT)
  Receive Date: 20130331
  Receipt Date: 20130331
  Transmission Date: 20140127
  Serious: Yes (Other)
  Sender: FDA-Public Use
  Company Number: IT-009507513-1303ITA014154

PATIENT
  Age: 15 Year
  Sex: Male

DRUGS (5)
  1. CHLORPHENIRAMINE MALEATE [Suspect]
     Indication: PYREXIA
     Dosage: TOTAL DAILY DOSE:2 MILLIGRAMS
     Route: 048
     Dates: start: 20130314, end: 20130314
  2. ACETAMINOPHEN\CAFFEINE [Suspect]
     Indication: PYREXIA
     Dosage: TOTAL DAILY DOSE:1GRAM
     Route: 048
     Dates: start: 20130314, end: 20130314
  3. PSEUDOEPHEDRINE HYDROCHLORIDE [Suspect]
     Indication: PYREXIA
     Dosage: TOTAL DAILY DOSE: 30 MILLIGRAMS
     Route: 048
     Dates: start: 20130314, end: 20130314
  4. DEXTROMETHORPHAN HYDROBROMIDE [Suspect]
     Indication: PYREXIA
     Dosage: TOTAL DAILY DOSE:10 MILLIGRAMS
     Route: 048
     Dates: start: 20130314, end: 20130314
  5. DIPYRONE [Suspect]
     Indication: PYREXIA
     Dosage: TOTAL DAILY DOSE:0.5 GRAM
     Route: 048
     Dates: start: 20130314, end: 20130314

REACTIONS (7)
  - Loss of consciousness [Recovering/Resolving]
  - Eyelid oedema [Recovering/Resolving]
  - Erythema [Recovering/Resolving]
  - Pruritus [Recovering/Resolving]
  - Asthenia [Recovering/Resolving]
  - Off label use [None]
  - Hypotonia [None]
